FAERS Safety Report 16676315 (Version 1)
Quarter: 2019Q3

REPORT INFORMATION
  Report Type: Spontaneous
  Country: PL (occurrence: PL)
  Receive Date: 20190807
  Receipt Date: 20190807
  Transmission Date: 20191004
  Serious: Yes (Other)
  Sender: FDA-Public Use
  Company Number: PL-HRAPH01-201900557

PATIENT
  Sex: Female

DRUGS (1)
  1. ELLAONE [Suspect]
     Active Substance: ULIPRISTAL ACETATE
     Indication: POST COITAL CONTRACEPTION
     Dosage: DOSE NOT SPECIFIED
     Route: 048

REACTIONS (11)
  - Abdominal discomfort [Unknown]
  - Disturbance in attention [Unknown]
  - Anxiety [Unknown]
  - Sleep disorder [Unknown]
  - Emotional disorder [Unknown]
  - Uterine pain [Unknown]
  - Hot flush [Unknown]
  - Appetite disorder [Unknown]
  - Borderline personality disorder [Unknown]
  - Mixed anxiety and depressive disorder [Unknown]
  - Dyspepsia [Unknown]
